FAERS Safety Report 17817073 (Version 3)
Quarter: 2022Q2

REPORT INFORMATION
  Report Type: Spontaneous
  Country: US (occurrence: US)
  Receive Date: 20200522
  Receipt Date: 20220428
  Transmission Date: 20220721
  Serious: No
  Sender: FDA-Public Use
  Company Number: US-PFIZER INC-2020203743

PATIENT
  Age: 37 Year
  Sex: Female

DRUGS (3)
  1. IBRANCE [Suspect]
     Active Substance: PALBOCICLIB
     Indication: Breast cancer female
     Dosage: 100 MG, UNK
     Dates: start: 20190501
  2. IBRANCE [Suspect]
     Active Substance: PALBOCICLIB
     Dosage: 100 MG, CYCLIC (TAKE ONCE DAILY BY MOUTH FOR 21 DAYS ON AND 7 DAYS OFF)
     Route: 048
     Dates: start: 202106
  3. IBRANCE [Suspect]
     Active Substance: PALBOCICLIB
     Dosage: 100 MG, CYCLIC (TAKE ONCE DAILY BY MOUTH FOR 21 DAYS ON AND 7 DAYS OFF)
     Dates: start: 20210619

REACTIONS (5)
  - Fatigue [Unknown]
  - Product dose omission issue [Recovered/Resolved]
  - Neuralgia [Unknown]
  - Paraesthesia [Unknown]
  - Product dose omission in error [Unknown]

NARRATIVE: CASE EVENT DATE: 20210718
